FAERS Safety Report 4705590-7 (Version None)
Quarter: 2005Q2

REPORT INFORMATION
  Report Type: 
  Country: None (occurrence: None)
  Receive Date: 20050629
  Receipt Date: 20040824
  Transmission Date: 20051028
  Serious: Yes (Hospitalization)
  Sender: FDA-Public Use
  Company Number: 200418459GDDC

PATIENT
  Age: 63 Year
  Sex: Male
  Weight: 52.8 kg

DRUGS (9)
  1. CISPLATIN [Suspect]
     Indication: NEOPLASM MALIGNANT
     Dosage: 45 MG/DAY IV
     Route: 042
     Dates: start: 20040812, end: 20040812
  2. RADIOTHERAPY [Suspect]
     Indication: NEOPLASM MALIGNANT
     Dates: end: 20040818
  3. ZOFRAN [Concomitant]
  4. LASIX [Concomitant]
  5. GASCON [Concomitant]
  6. ATIVAN [Concomitant]
  7. PHAZYME [Concomitant]
  8. MUTERAN [Concomitant]
  9. CONOFEN [Concomitant]

REACTIONS (6)
  - ASTHENIA [None]
  - DYSPHONIA [None]
  - FUNGAL INFECTION [None]
  - ODYNOPHAGIA [None]
  - ORAL INTAKE REDUCED [None]
  - PRODUCTIVE COUGH [None]
